FAERS Safety Report 9095288 (Version 3)
Quarter: 2013Q1

REPORT INFORMATION
  Report Type: Spontaneous
  Country: CN (occurrence: None)
  Receive Date: 20130122
  Receipt Date: 20130205
  Transmission Date: 20140127
  Serious: Yes (Hospitalization)
  Sender: FDA-Public Use
  Company Number: DSA_62002_2013

PATIENT
  Sex: Female

DRUGS (10)
  1. FLUOROURACIL [Suspect]
     Indication: COLON CANCER
     Route: 040
     Dates: start: 20121212, end: 20121212
  2. BLINDED THERAPY [Suspect]
     Indication: COLON CANCER
     Route: 041
     Dates: start: 20121212, end: 20121212
  3. IRINOTECAN (IRINOTECAN) [Suspect]
     Indication: COLON CANCER
     Route: 041
     Dates: start: 20121212, end: 20121212
  4. LEUCOVORIN [Suspect]
     Indication: COLON CANCER
     Route: 041
     Dates: start: 20121212, end: 20121212
  5. PALONOSETRON HYDROCHLORIDE [Concomitant]
  6. DEXAMETHASONE [Concomitant]
  7. LOPERAMIDE [Concomitant]
  8. G-CSF [Concomitant]
  9. XELODA [Concomitant]
  10. OXALIPLATIN [Concomitant]

REACTIONS (6)
  - Blood pressure increased [None]
  - No therapeutic response [None]
  - Urine protein/creatinine ratio increased [None]
  - Haematuria [None]
  - Toxicity to various agents [None]
  - Blood pressure systolic increased [None]
